FAERS Safety Report 9726470 (Version 1)
Quarter: 2013Q4

REPORT INFORMATION
  Report Type: Spontaneous
  Country: GB (occurrence: None)
  Receive Date: 20131129
  Receipt Date: 20131129
  Transmission Date: 20140711
  Serious: Yes (Hospitalization)
  Sender: FDA-Public Use
  Company Number: 2013PL000209

PATIENT
  Age: 73 Year
  Sex: Male

DRUGS (8)
  1. AZATHIOPRINE (AZATHIOPRINE) [Suspect]
     Indication: IMMUNOSUPPRESSION
  2. PREDNISOLONE [Concomitant]
  3. LISINOPRIL [Concomitant]
  4. COTRIMOXAZOLE [Concomitant]
  5. GLICLAZIDE [Concomitant]
  6. FOLIC ACID [Concomitant]
  7. HYDROXOCOBALAMIN [Concomitant]
  8. RANITIDINE [Concomitant]

REACTIONS (3)
  - Encephalopathy [None]
  - Coma [None]
  - Hypersensitivity [None]
